FAERS Safety Report 5489718-X (Version None)
Quarter: 2007Q4

REPORT INFORMATION
  Report Type: 
  Country: None (occurrence: None)
  Receive Date: 20071017
  Receipt Date: 20071017
  Transmission Date: 20080405
  Serious: Yes (Other)
  Sender: FDA-Public Use
  Company Number: None

PATIENT
  Age: 61 Year
  Sex: Female

DRUGS (2)
  1. RATG [Suspect]
     Indication: MULTIPLE MYELOMA
     Dosage: 6MG/KG (TOTAL) QD IV
     Route: 042
     Dates: start: 20061127, end: 20061201
  2. RAPAMYCIN [Suspect]
     Indication: MULTIPLE MYELOMA
     Dosage: 1 MG PO QD
     Route: 048
     Dates: start: 20061127, end: 20061226

REACTIONS (3)
  - LUNG ADENOCARCINOMA [None]
  - MALIGNANT NEOPLASM PROGRESSION [None]
  - RENAL CELL CARCINOMA STAGE UNSPECIFIED [None]
